FAERS Safety Report 5147956-X (Version None)
Quarter: 2006Q4

REPORT INFORMATION
  Report Type: 
  Country: None (occurrence: None)
  Receive Date: 20061106
  Receipt Date: 20061026
  Transmission Date: 20070319
  Serious: Yes (Hospitalization, Other)
  Sender: FDA-Public Use
  Company Number: 233231K06USA

PATIENT
  Age: 34 Year
  Sex: Female

DRUGS (2)
  1. REBIF [Suspect]
     Indication: MULTIPLE SCLEROSIS
     Dosage: 44 MCG, 3 IN 1 WEEKS, SUBCUTANEOUS
     Route: 058
     Dates: start: 20031001, end: 20060530
  2. ZOLOFT [Concomitant]

REACTIONS (4)
  - BENIGN BREAST NEOPLASM [None]
  - HYPERTHYROIDISM [None]
  - OVARIAN CYST [None]
  - PAPILLARY THYROID CANCER [None]
